FAERS Safety Report 13010313 (Version 1)
Quarter: 2016Q4

REPORT INFORMATION
  Report Type: Spontaneous
  Country: US (occurrence: US)
  Receive Date: 20161207
  Receipt Date: 20161207
  Transmission Date: 20170207
  Serious: No
  Sender: FDA-Public Use
  Company Number: None

PATIENT
  Age: 35 Year
  Sex: Male
  Weight: 85.5 kg

DRUGS (9)
  1. VENLAFAXINCE HCL [Suspect]
     Active Substance: VENLAFAXINE HYDROCHLORIDE
     Indication: ANXIETY
     Dosage: ?          QUANTITY:90 CAPSULE(S);?
     Route: 048
     Dates: start: 20140828, end: 20150430
  2. FINESTERIDE [Concomitant]
     Active Substance: FINASTERIDE
  3. GLUCOSAMINE CHONDROITIN [Concomitant]
     Active Substance: CHONDROITIN SULFATE (BOVINE)\GLUCOSAMINE HYDROCHLORIDE
  4. FISH OIL [Concomitant]
     Active Substance: FISH OIL
  5. VENLAFAXINCE HCL [Suspect]
     Active Substance: VENLAFAXINE HYDROCHLORIDE
     Indication: OBSESSIVE-COMPULSIVE DISORDER
     Dosage: ?          QUANTITY:90 CAPSULE(S);?
     Route: 048
     Dates: start: 20140828, end: 20150430
  6. ONE-A-DAY NOS [Concomitant]
     Active Substance: MINERALS\VITAMINS
  7. FLAXSEED [Concomitant]
     Active Substance: FLAX SEED
  8. HAIR SKIN AND NAILS [Concomitant]
  9. OXYBUTNIN [Concomitant]

REACTIONS (7)
  - Abnormal behaviour [None]
  - Legal problem [None]
  - Judgement impaired [None]
  - Loss of consciousness [None]
  - Amnesia [None]
  - Weight increased [None]
  - Speech disorder [None]

NARRATIVE: CASE EVENT DATE: 20141201
